FAERS Safety Report 4634702-9 (Version None)
Quarter: 2005Q2

REPORT INFORMATION
  Report Type: 
  Country: None (occurrence: None)
  Receive Date: 20050413
  Receipt Date: 20050413
  Transmission Date: 20051028
  Serious: Yes (Death)
  Sender: FDA-Public Use
  Company Number: None

PATIENT
  Age: 43 Year
  Sex: Female

DRUGS (1)
  1. MERCAPTOPURINE [Suspect]
     Indication: CROHN'S DISEASE
     Dates: start: 20021101, end: 20030601

REACTIONS (3)
  - EMBOLISM [None]
  - IMMUNOSUPPRESSION [None]
  - LUNG CANCER METASTATIC [None]
